FAERS Safety Report 22830369 (Version 5)
Quarter: 2023Q4

REPORT INFORMATION
  Report Type: Spontaneous
  Country: FR (occurrence: FR)
  Receive Date: 20230817
  Receipt Date: 20231210
  Transmission Date: 20240110
  Serious: Yes (Other)
  Sender: FDA-Public Use
  Company Number: FR-CRISTERS-202303786

PATIENT
  Age: 42 Year
  Sex: Male

DRUGS (1)
  1. ARIPIPRAZOLE [Suspect]
     Active Substance: ARIPIPRAZOLE
     Indication: Major depression
     Dosage: 5 MILLIGRAM, ONCE A DAY
     Route: 065

REACTIONS (7)
  - Choroidal effusion [Recovered/Resolved]
  - Acute myopia [Recovered/Resolved]
  - Product use in unapproved indication [Recovered/Resolved]
  - Visual acuity reduced [Recovered/Resolved]
  - Refraction disorder [Recovered/Resolved]
  - Conjunctival hyperaemia [Recovered/Resolved]
  - Off label use [Recovered/Resolved]
